FAERS Safety Report 7423041-9 (Version None)
Quarter: 2011Q2

REPORT INFORMATION
  Report Type: 
  Country: None (occurrence: None)
  Receive Date: 20110419
  Receipt Date: 20110412
  Transmission Date: 20111010
  Serious: Yes (Hospitalization)
  Sender: FDA-Public Use
  Company Number: PT-AMGEN-PRTSP2011017110

PATIENT
  Age: 65 Year
  Sex: Female
  Weight: 70 kg

DRUGS (3)
  1. NEUPOGEN [Suspect]
     Indication: CHEMOTHERAPY
     Dosage: 300
     Route: 058
     Dates: start: 20110316, end: 20110322
  2. EPOGEN [Concomitant]
     Dosage: 30000 IU, QWK
     Route: 058
     Dates: start: 20110321
  3. CHEMOTHERAPEUTICS NOS [Concomitant]

REACTIONS (2)
  - PNEUMONIA STREPTOCOCCAL [None]
  - RESPIRATORY FAILURE [None]
